FAERS Safety Report 4937012-5 (Version None)
Quarter: 2006Q1

REPORT INFORMATION
  Report Type: 
  Country: None (occurrence: None)
  Receive Date: 20060309
  Receipt Date: 20050930
  Transmission Date: 20060701
  Serious: Yes (Hospitalization, Other)
  Sender: FDA-Public Use
  Company Number: US-MERCK-0510USA02069

PATIENT
  Age: 56 Year
  Sex: Female
  Weight: 57 kg

DRUGS (10)
  1. VIOXX [Suspect]
     Indication: FIBROMYALGIA
     Route: 048
     Dates: start: 19991026, end: 20000530
  2. VIOXX [Suspect]
     Route: 048
     Dates: start: 20000726, end: 20020624
  3. VIOXX [Suspect]
     Route: 048
     Dates: start: 20020625, end: 20020902
  4. VIOXX [Suspect]
     Route: 048
     Dates: start: 20020903, end: 20020918
  5. VIOXX [Suspect]
     Route: 048
     Dates: start: 20021028
  6. VIOXX [Suspect]
     Indication: RHEUMATOID ARTHRITIS
     Route: 048
     Dates: start: 19991026, end: 20000530
  7. VIOXX [Suspect]
     Route: 048
     Dates: start: 20000726, end: 20020624
  8. VIOXX [Suspect]
     Route: 048
     Dates: start: 20020625, end: 20020902
  9. VIOXX [Suspect]
     Route: 048
     Dates: start: 20020903, end: 20020918
  10. VIOXX [Suspect]
     Route: 048
     Dates: start: 20021028

REACTIONS (24)
  - ABDOMINAL DISCOMFORT [None]
  - ACUTE MYOCARDIAL INFARCTION [None]
  - ANXIETY [None]
  - ARTERIOSCLEROSIS CORONARY ARTERY [None]
  - ARTERIOSPASM CORONARY [None]
  - ASTHMA [None]
  - BRONCHITIS ACUTE [None]
  - BRONCHITIS CHRONIC [None]
  - CARDIOMYOPATHY [None]
  - CHEST DISCOMFORT [None]
  - CHEST PAIN [None]
  - CORONARY ARTERY DISEASE [None]
  - CORONARY ARTERY STENOSIS [None]
  - DEPRESSION [None]
  - DIABETES MELLITUS NON-INSULIN-DEPENDENT [None]
  - GASTROOESOPHAGEAL REFLUX DISEASE [None]
  - HIATUS HERNIA [None]
  - HYPERGLYCAEMIA [None]
  - HYPERLIPIDAEMIA [None]
  - ISCHAEMIC CARDIOMYOPATHY [None]
  - MYOCARDIAL INFARCTION [None]
  - PLEURITIC PAIN [None]
  - UPPER RESPIRATORY TRACT INFECTION [None]
  - URINARY TRACT INFECTION [None]
